FAERS Safety Report 24536435 (Version 2)
Quarter: 2024Q4

REPORT INFORMATION
  Report Type: Report from Study
  Country: US (occurrence: US)
  Receive Date: 20241022
  Receipt Date: 20241210
  Transmission Date: 20250114
  Serious: Yes (Other)
  Sender: UCB
  Company Number: US-UCBSA-2024052913

PATIENT
  Age: 35 Year
  Sex: Female

DRUGS (1)
  1. ZILUCOPLAN [Suspect]
     Active Substance: ZILUCOPLAN
     Indication: Myasthenia gravis
     Dosage: 23 MILLIGRAM
     Route: 058
     Dates: start: 20241008

REACTIONS (3)
  - Myasthenia gravis [Recovering/Resolving]
  - Oropharyngeal pain [Recovering/Resolving]
  - Injection site pain [Recovering/Resolving]

NARRATIVE: CASE EVENT DATE: 20241008
